FAERS Safety Report 8771288 (Version 1)
Quarter: 2012Q4

REPORT INFORMATION
  Report Type: 
  Country: None (occurrence: US)
  Receive Date: 20120905
  Receipt Date: 20120905
  Transmission Date: 20130627
  Serious: No
  Sender: FDA-Public Use
  Company Number: US-TEVA-356940USA

PATIENT
  Age: 70 Year
  Sex: Male

DRUGS (1)
  1. PROAIR HFA [Suspect]
     Route: 055

REACTIONS (1)
  - Drug intolerance [Recovered/Resolved]
